FAERS Safety Report 7643702-6 (Version None)
Quarter: 2011Q3

REPORT INFORMATION
  Report Type: 
  Country: None (occurrence: None)
  Receive Date: 20110722
  Receipt Date: 20110718
  Transmission Date: 20111222
  Serious: Yes (Other)
  Sender: FDA-Public Use
  Company Number: ACO_25860_2011

PATIENT
  Age: 37 Year
  Sex: Female
  Weight: 51.2 kg

DRUGS (5)
  1. ZANAFLEX [Suspect]
     Indication: PAIN
     Dosage: 4MG, ORAL
     Route: 048
     Dates: start: 20070101
  2. XANAX [Suspect]
     Indication: PRODUCT USED FOR UNKNOWN INDICATION
     Dosage: ORAL
     Route: 048
     Dates: start: 19990101
  3. PERCOCET [Suspect]
     Indication: PAIN
     Dosage: ORAL
  4. LYRICA [Suspect]
     Indication: PAIN
     Dosage: 75 MG, QD, ORAL
     Route: 048
     Dates: start: 20110627
  5. BUTRANS (BUPRENORPHINE) [Concomitant]

REACTIONS (13)
  - ABDOMINAL PAIN UPPER [None]
  - INSOMNIA [None]
  - OROPHARYNGEAL PAIN [None]
  - BIPOLAR DISORDER [None]
  - VISION BLURRED [None]
  - DYSPHAGIA [None]
  - ENERGY INCREASED [None]
  - DRUG INTERACTION [None]
  - FEELING ABNORMAL [None]
  - MALAISE [None]
  - IRRITABILITY [None]
  - HUNGER [None]
  - CRYING [None]
